FAERS Safety Report 21246038 (Version 1)
Quarter: 2022Q3

REPORT INFORMATION
  Report Type: Report from Study
  Country: BR (occurrence: BR)
  Receive Date: 20220824
  Receipt Date: 20220824
  Transmission Date: 20221026
  Serious: Yes (Other)
  Sender: FDA-Public Use
  Company Number: BR-JNJFOC-20220833146

PATIENT
  Age: 58 Year
  Sex: Female

DRUGS (2)
  1. SIMPONI [Suspect]
     Active Substance: GOLIMUMAB
     Indication: Ankylosing spondylitis
     Route: 058
     Dates: start: 20220808
  2. SIMPONI [Suspect]
     Active Substance: GOLIMUMAB

REACTIONS (8)
  - Colitis [Unknown]
  - Neck pain [Unknown]
  - Headache [Unknown]
  - Eye pain [Unknown]
  - Rhinitis [Unknown]
  - Acne [Unknown]
  - Wound [Unknown]
  - Asthenopia [Unknown]

NARRATIVE: CASE EVENT DATE: 20220808
